FAERS Safety Report 8987522 (Version 3)
Quarter: 2013Q4

REPORT INFORMATION
  Report Type: Report from Study
  Country: CA (occurrence: CA)
  Receive Date: 20121227
  Receipt Date: 20131003
  Transmission Date: 20140711
  Serious: Yes (Death, Hospitalization, Other)
  Sender: FDA-Public Use
  Company Number: CA-ROCHE-1108843

PATIENT
  Sex: Male
  Weight: 82 kg

DRUGS (17)
  1. ACTEMRA [Suspect]
     Indication: RHEUMATOID ARTHRITIS
     Route: 042
     Dates: start: 20110613
  2. ACTEMRA [Suspect]
     Route: 042
     Dates: start: 20110808
  3. ACTEMRA [Suspect]
     Route: 042
     Dates: start: 20110711
  4. ACTEMRA [Suspect]
     Route: 042
     Dates: start: 20121119
  5. ATENOLOL [Concomitant]
  6. FUROSEMIDE [Concomitant]
  7. ADALAT XL [Concomitant]
  8. FOLIC ACID [Concomitant]
  9. METHOTREXATE [Concomitant]
  10. ALLOPURINOL [Concomitant]
     Route: 065
  11. CRESTOR [Concomitant]
  12. SLOW-K [Concomitant]
  13. NOVORAPID [Concomitant]
  14. LEVEMIR [Concomitant]
  15. TAMSULOSIN [Concomitant]
  16. CALCITRIOL [Concomitant]
     Route: 065
  17. CALCIUM CARBONATE [Concomitant]

REACTIONS (6)
  - Death [Fatal]
  - Finger amputation [Unknown]
  - Localised infection [Recovering/Resolving]
  - Immobile [Unknown]
  - Rheumatoid arthritis [Unknown]
  - Weight decreased [Not Recovered/Not Resolved]
